FAERS Safety Report 4399178-8 (Version None)
Quarter: 2004Q3

REPORT INFORMATION
  Report Type: 
  Country: None (occurrence: None)
  Receive Date: 20040716
  Receipt Date: 20040630
  Transmission Date: 20050211
  Serious: Yes (Death, Other)
  Sender: FDA-Public Use
  Company Number: PHBS2004JP08735

PATIENT

DRUGS (2)
  1. TEGRETOL [Suspect]
     Indication: EPILEPSY
     Route: 048
  2. CLOBAZAM [Concomitant]
     Dosage: 10 MG/DAY
     Route: 048

REACTIONS (4)
  - ALANINE AMINOTRANSFERASE INCREASED [None]
  - ASPARTATE AMINOTRANSFERASE INCREASED [None]
  - DEATH [None]
  - HEPATIC FUNCTION ABNORMAL [None]
